FAERS Safety Report 6282815-0 (Version None)
Quarter: 2009Q3

REPORT INFORMATION
  Report Type: 
  Country: None (occurrence: None)
  Receive Date: 20090724
  Receipt Date: 20090713
  Transmission Date: 20100115
  Serious: Yes (Other)
  Sender: FDA-Public Use
  Company Number: US-PFIZER INC-2009243001

PATIENT
  Sex: Female
  Weight: 65.76 kg

DRUGS (3)
  1. DILANTIN [Suspect]
     Indication: CONVULSION
     Dosage: 100 MG, UNK
     Route: 048
     Dates: start: 19660101
  2. DILANTIN [Suspect]
     Dosage: 50 MG, ALTERNATE DAY
     Route: 048
     Dates: start: 20080101
  3. SYNTHROID [Concomitant]

REACTIONS (9)
  - CROHN'S DISEASE [None]
  - DRUG LEVEL INCREASED [None]
  - FATIGUE [None]
  - HYPOAESTHESIA [None]
  - MUSCULAR WEAKNESS [None]
  - SOMNOLENCE [None]
  - THYROID DISORDER [None]
  - TINNITUS [None]
  - WEIGHT DECREASED [None]
